FAERS Safety Report 7987902-4 (Version None)
Quarter: 2011Q4

REPORT INFORMATION
  Report Type: 
  Country: None (occurrence: None)
  Receive Date: 20111216
  Receipt Date: 20111214
  Transmission Date: 20120403
  Serious: Yes (Life-Threatening)
  Sender: FDA-Public Use
  Company Number: JP-ABBOTT-11P-087-0877408-00

PATIENT
  Age: 21 Year
  Sex: Female

DRUGS (3)
  1. CLARITHROMYCIN [Suspect]
     Indication: LYMPHADENITIS
  2. IBUPROFEN [Concomitant]
     Indication: LYMPHADENITIS
  3. ACETAMINOPHEN [Concomitant]
     Indication: LYMPHADENITIS

REACTIONS (3)
  - STEVENS-JOHNSON SYNDROME [None]
  - SYSTEMIC INFLAMMATORY RESPONSE SYNDROME [None]
  - DISSEMINATED INTRAVASCULAR COAGULATION [None]
